FAERS Safety Report 7405179-5 (Version None)
Quarter: 2011Q2

REPORT INFORMATION
  Report Type: 
  Country: None (occurrence: None)
  Receive Date: 20110411
  Receipt Date: 20110401
  Transmission Date: 20111010
  Serious: Yes (Death, Hospitalization)
  Sender: FDA-Public Use
  Company Number: CA-ELI_LILLY_AND_COMPANY-CA201103000206

PATIENT
  Age: 76 Year
  Sex: Female

DRUGS (1)
  1. ADCIRCA [Suspect]
     Dosage: 20 MG, UNKNOWN

REACTIONS (2)
  - RESPIRATORY FAILURE [None]
  - CARDIAC FAILURE CONGESTIVE [None]
